FAERS Safety Report 19921612 (Version 1)
Quarter: 2021Q4

REPORT INFORMATION
  Report Type: Spontaneous
  Country: US (occurrence: US)
  Receive Date: 20211005
  Receipt Date: 20211005
  Transmission Date: 20220303
  Serious: No
  Sender: FDA-Public Use
  Company Number: US-MYLANLABS-2021M1048265

PATIENT
  Sex: Male
  Weight: 113 kg

DRUGS (1)
  1. WIXELA INHUB [Suspect]
     Active Substance: FLUTICASONE PROPIONATE\SALMETEROL XINAFOATE
     Indication: Dyspnoea
     Dosage: 250/50 MICROGRAM, QD (2 PUFF A DAY AS NEEDED)
     Route: 055
     Dates: start: 20210706

REACTIONS (3)
  - Device issue [Unknown]
  - Product quality issue [Unknown]
  - Product storage error [Unknown]
